FAERS Safety Report 9857985 (Version 1)
Quarter: 2014Q1

REPORT INFORMATION
  Report Type: Report from Study
  Country: DE (occurrence: DE)
  Receive Date: 20140131
  Receipt Date: 20140131
  Transmission Date: 20141002
  Serious: Yes (Death, Hospitalization, Other)
  Sender: FDA-Public Use
  Company Number: DE-ROCHE-1340959

PATIENT
  Age: 72 Year
  Sex: Female

DRUGS (2)
  1. BEVACIZUMAB [Suspect]
     Indication: COLON CANCER METASTATIC
     Route: 065
  2. NOVALGIN [Concomitant]
     Indication: PAIN
     Route: 048
     Dates: start: 20130922

REACTIONS (4)
  - Malignant neoplasm progression [Fatal]
  - Clostridium difficile colitis [Recovered/Resolved]
  - Dehydration [Unknown]
  - General physical health deterioration [Unknown]
